FAERS Safety Report 6903202-5 (Version None)
Quarter: 2010Q3

REPORT INFORMATION
  Report Type: 
  Country: None (occurrence: None)
  Receive Date: 20100803
  Receipt Date: 20080605
  Transmission Date: 20110219
  Serious: No
  Sender: FDA-Public Use
  Company Number: US-PFIZER INC-2008047327

PATIENT
  Sex: Female

DRUGS (11)
  1. LYRICA [Suspect]
     Indication: PAIN
     Dates: start: 20080501
  2. LYRICA [Suspect]
     Indication: MYALGIA
  3. LYRICA [Suspect]
     Indication: TEMPORAL ARTERITIS
  4. PREDNISONE [Suspect]
  5. LASIX [Concomitant]
  6. VALIUM [Concomitant]
  7. VICODIN [Concomitant]
  8. THYROID TAB [Concomitant]
  9. ACCUPRIL [Concomitant]
  10. PAXIL [Concomitant]
  11. BUSPAR [Concomitant]

REACTIONS (10)
  - ASTHENIA [None]
  - DISTURBANCE IN ATTENTION [None]
  - DIZZINESS [None]
  - DYSARTHRIA [None]
  - FATIGUE [None]
  - FEELING ABNORMAL [None]
  - ILL-DEFINED DISORDER [None]
  - STUPOR [None]
  - TREMOR [None]
  - WEIGHT INCREASED [None]
